FAERS Safety Report 22601469 (Version 1)
Quarter: 2023Q2

REPORT INFORMATION
  Report Type: Report from Study
  Country: CA (occurrence: CA)
  Receive Date: 20230614
  Receipt Date: 20230614
  Transmission Date: 20230721
  Serious: Yes (Hospitalization)
  Sender: FDA-Public Use
  Company Number: CA-SAMSUNG BIOEPIS-SB-2023-15389

PATIENT
  Age: 82 Year
  Sex: Male

DRUGS (1)
  1. ETANERCEPT [Suspect]
     Active Substance: ETANERCEPT
     Indication: Rheumatoid arthritis
     Route: 065
     Dates: start: 20230516

REACTIONS (4)
  - Rectal haemorrhage [Recovered/Resolved]
  - Fluid retention [Unknown]
  - Weight increased [Unknown]
  - Product use issue [Unknown]
